FAERS Safety Report 10372621 (Version 2)
Quarter: 2014Q3

REPORT INFORMATION
  Report Type: Report from Study
  Country: US (occurrence: US)
  Receive Date: 20140808
  Receipt Date: 20140808
  Transmission Date: 20150326
  Serious: Yes (Hospitalization)
  Sender: FDA-Public Use
  Company Number: PHHY2013US087699

PATIENT
  Age: 61 Year
  Sex: Female

DRUGS (55)
  1. XOLAIR [Suspect]
     Active Substance: OMALIZUMAB
     Indication: OBSTRUCTIVE AIRWAYS DISORDER
     Dosage: 1.8 MG, (1.2 MG ON LEFT ARM AND 0.6 MG ON RIGHT ARM)
     Route: 058
     Dates: start: 20130712
  2. XOLAIR [Suspect]
     Active Substance: OMALIZUMAB
     Indication: EMPHYSEMA
     Dosage: 1.8 MG, (0.6 MG ON LEFT ARM AND 1.2 MG ON RIGHT ARM)
     Route: 058
     Dates: start: 20130730
  3. XOLAIR [Suspect]
     Active Substance: OMALIZUMAB
     Dosage: UNK
     Route: 058
     Dates: start: 20140422
  4. ZITHROMAX TRI-PAK [Concomitant]
     Dosage: 250 MG, UNK
     Route: 048
  5. TOPIRAMATE. [Concomitant]
     Active Substance: TOPIRAMATE
     Dosage: 25 MG, BID
  6. XOLAIR [Suspect]
     Active Substance: OMALIZUMAB
     Dosage: 1.8 MG, (1.2 MG ON LEFT ARM AND 0.6 MG ON RIGHT ARM)
     Route: 058
     Dates: start: 20131022
  7. XOLAIR [Suspect]
     Active Substance: OMALIZUMAB
     Dosage: UNK
     Route: 058
     Dates: start: 20140520
  8. PREDNISONE. [Concomitant]
     Active Substance: PREDNISONE
     Dosage: 10 MG, BID
  9. BENZONATATE. [Concomitant]
     Active Substance: BENZONATATE
     Indication: COUGH
     Dosage: 1 TO 2 CAPSULES EVERY 6 HOURLY
  10. NYSTATIN. [Concomitant]
     Active Substance: NYSTATIN
     Dosage: 1000 UNITS/ML 4 TIMES A DAY FOR 10 DAYS
  11. EPIPEN [Concomitant]
     Active Substance: EPINEPHRINE
     Dosage: 0.3 MG/0.3 ML, AS DIRECTED
  12. ASPIRIN. [Concomitant]
     Active Substance: ASPIRIN
     Indication: DIABETES MELLITUS
     Dosage: 81 MG, DAILY
  13. SINGULAIR [Concomitant]
     Active Substance: MONTELUKAST SODIUM
     Dosage: 10 MG, DAILY
     Route: 048
  14. IMITREX [Concomitant]
     Active Substance: SUMATRIPTAN\SUMATRIPTAN SUCCINATE
     Dosage: 100 MG, UNK
  15. XOLAIR [Suspect]
     Active Substance: OMALIZUMAB
     Dosage: 1.8 MG, (1.2 MG ON LEFT ARM AND 0.6 MG ON RIGHT ARM)
     Route: 058
     Dates: start: 20130914
  16. XOLAIR [Suspect]
     Active Substance: OMALIZUMAB
     Dosage: 1.8 MG, (0.6 MG ON LEFT ARM AND 1.2 MG ON RIGHT ARM)
     Route: 058
     Dates: start: 20131008
  17. XOLAIR [Suspect]
     Active Substance: OMALIZUMAB
     Dosage: 1.8 MG, (0.6 MG ON LEFT ARM AND 1.2 MG ON RIGHT ARM)
     Route: 058
     Dates: start: 20131205
  18. XOLAIR [Suspect]
     Active Substance: OMALIZUMAB
     Dosage: UNK
     Route: 058
     Dates: start: 20140604
  19. LISINOPRIL TABLETS [Suspect]
     Active Substance: LISINOPRIL
     Indication: HYPERTENSION
     Dosage: 40 MG, DAILY
     Route: 048
  20. METFORMIN [Concomitant]
     Active Substance: METFORMIN HYDROCHLORIDE
     Indication: DIABETES MELLITUS
     Dosage: 500 MG, BID
  21. PROMETHAZINE HCL [Concomitant]
     Active Substance: PROMETHAZINE HYDROCHLORIDE
     Indication: NAUSEA
     Dosage: 25 MG, EVERY 4 TO 6 HOUR
     Route: 048
  22. XOLAIR [Suspect]
     Active Substance: OMALIZUMAB
     Dosage: 1.8 MG, (0.6 MG ON LEFT ARM AND 1.2 MG ON RIGHT ARM)
     Route: 058
     Dates: start: 20131106
  23. XOLAIR [Suspect]
     Active Substance: OMALIZUMAB
     Dosage: UNK
     Route: 058
     Dates: start: 20140709
  24. PREDNISONE. [Concomitant]
     Active Substance: PREDNISONE
     Dosage: 10 MG, QD
  25. ALBUTEROL. [Concomitant]
     Active Substance: ALBUTEROL
     Dosage: 0.5 TO 2.5 (3) MG/3 ML SOLUTION PRN
  26. OMEPRAZOLE. [Concomitant]
     Active Substance: OMEPRAZOLE
     Dosage: 20 MG, DAILY
     Route: 048
  27. TIZANIDINE HYDROCHLORIDE. [Concomitant]
     Active Substance: TIZANIDINE HYDROCHLORIDE
     Dosage: 4 MG, BID
     Route: 048
  28. XOPENEX [Concomitant]
     Active Substance: LEVALBUTEROL HYDROCHLORIDE
     Dosage: UNK
  29. DICLOFENAC [Concomitant]
     Active Substance: DICLOFENAC
     Indication: OSTEOARTHRITIS
     Dosage: 75 MG, BID
  30. XOLAIR [Suspect]
     Active Substance: OMALIZUMAB
     Dosage: 1.8 MG, (1.2 MG ON LEFT ARM AND 0.6 MG ON RIGHT ARM)
     Route: 058
     Dates: start: 20140109
  31. LISINOPRIL TABLETS [Suspect]
     Active Substance: LISINOPRIL
     Indication: DIABETES MELLITUS
  32. ADVAIR DISKUS [Concomitant]
     Active Substance: FLUTICASONE PROPIONATE\SALMETEROL XINAFOATE
     Dosage: 500 TO 50 MCG/DOSE, 2 IN 1 DAY
     Route: 048
  33. IPRATROPIUM BROMIDE. [Concomitant]
     Active Substance: IPRATROPIUM BROMIDE
     Dosage: 0.5 TO 2.5 (3) MG/3 ML SOLUTION (AS PER NEED)
  34. MUCINEX [Concomitant]
     Active Substance: GUAIFENESIN
     Dosage: 600 MG, QD
  35. THEOPHYLLINE [Concomitant]
     Active Substance: THEOPHYLLINE
     Dosage: 300 MG, BID
  36. SIMVASTATIN. [Concomitant]
     Active Substance: SIMVASTATIN
     Indication: HYPERLIPIDAEMIA
     Dosage: 80 MG, DAILY
     Route: 048
  37. ASPIRIN. [Concomitant]
     Active Substance: ASPIRIN
     Dosage: 325 MG, QD
  38. SERTRALINE [Concomitant]
     Active Substance: SERTRALINE HYDROCHLORIDE
     Dosage: UNK
  39. XOLAIR [Suspect]
     Active Substance: OMALIZUMAB
     Dosage: 1.8 MG,  (1.2 MG ON LEFT ARM AND 0.6 MG ON RIGHT ARM)
     Route: 058
     Dates: start: 20130814
  40. XOLAIR [Suspect]
     Active Substance: OMALIZUMAB
     Dosage: UNK
     Route: 058
     Dates: start: 20140409
  41. FOSAMAX [Concomitant]
     Active Substance: ALENDRONATE SODIUM
     Dosage: 70 MG, QD
     Route: 048
  42. INDOMETHACIN. [Concomitant]
     Active Substance: INDOMETHACIN
     Dosage: 50 MG, TID
     Route: 048
  43. XOLAIR [Suspect]
     Active Substance: OMALIZUMAB
     Indication: ASTHMA
     Dosage: 225 MG, ONCE IN TWO WEEKS
     Route: 058
  44. XOLAIR [Suspect]
     Active Substance: OMALIZUMAB
     Dosage: 1.8 MG,  (0.6 MG ON LEFT ARM AND 1.2 MG ON RIGHT ARM)
     Route: 058
     Dates: start: 20130830
  45. HYDROCHLOROTHIAZIDE. [Concomitant]
     Active Substance: HYDROCHLOROTHIAZIDE
     Indication: HYPERTENSION
     Dosage: 25 MG, DAILY
     Route: 048
  46. SPIRIVA [Concomitant]
     Active Substance: TIOTROPIUM BROMIDE MONOHYDRATE
     Dosage: 180 UG, DAILY
  47. COMBIVENT RESPIMAT [Concomitant]
     Active Substance: ALBUTEROL SULFATE\IPRATROPIUM BROMIDE
     Dosage: 20 TO 100 MCG/ACT, 1 PUFF (4 IN 1 D)
  48. XOLAIR [Suspect]
     Active Substance: OMALIZUMAB
     Dosage: 1.8 MG, (1.2 MG ON LEFT ARM AND 0.6 MG ON RIGHT ARM)
     Route: 058
     Dates: start: 20131121
  49. XOLAIR [Suspect]
     Active Substance: OMALIZUMAB
     Dosage: 1.8 MG, (0.6 MG ON LEFT ARM AND 1.2 MG ON RIGHT ARM)
     Route: 058
     Dates: start: 20140128
  50. PROAIR HFA [Concomitant]
     Active Substance: ALBUTEROL SULFATE
     Dosage: 2 PUFFS EVERY 4 TO 6 HOURLY
  51. CYMBALTA [Concomitant]
     Active Substance: DULOXETINE HYDROCHLORIDE
     Dosage: 60 MG, DAILY
     Route: 048
  52. CYCLOBENZAPRINE HCL [Concomitant]
     Active Substance: CYCLOBENZAPRINE HYDROCHLORIDE
     Dosage: 10 MG, PRN
  53. LORTAB [Concomitant]
     Active Substance: ACETAMINOPHEN\HYDROCODONE BITARTRATE
     Dosage: 7.5-500 MG TID
     Route: 048
  54. REQUIP [Concomitant]
     Active Substance: ROPINIROLE HYDROCHLORIDE
     Dosage: 2 MG, 1 IN 1 HOUR
     Route: 048
  55. DIAZEPAM. [Concomitant]
     Active Substance: DIAZEPAM
     Dosage: 5 MG, DAILY
     Route: 048

REACTIONS (4)
  - Chronic obstructive pulmonary disease [Unknown]
  - Blood immunoglobulin E abnormal [Unknown]
  - Oropharyngeal pain [Unknown]
  - Vitamin D abnormal [Unknown]

NARRATIVE: CASE EVENT DATE: 20120809
